FAERS Safety Report 5078579-9 (Version None)
Quarter: 2006Q3

REPORT INFORMATION
  Report Type: 
  Country: None (occurrence: None)
  Receive Date: 20060810
  Receipt Date: 20060810
  Transmission Date: 20061208
  Serious: Yes (Death)
  Sender: FDA-Public Use
  Company Number: None

PATIENT
  Age: 74 Year
  Sex: Female
  Weight: 65.7716 kg

DRUGS (4)
  1. CARBOPLATIN [Suspect]
     Indication: OVARIAN CANCER
     Dosage: AUC 6 DAY 1 IV Q21D
     Route: 042
     Dates: start: 20060711
  2. CARBOPLATIN [Suspect]
     Indication: OVARIAN CANCER
     Dosage: AUC 6 DAY 1 IV Q21D
     Route: 042
     Dates: start: 20060731
  3. PACLITAXEL [Suspect]
     Indication: OVARIAN CANCER
     Dosage: 175MG/M2  DAY 1 IV Q21D
     Route: 042
     Dates: start: 20060711
  4. PACLITAXEL [Suspect]
     Indication: OVARIAN CANCER
     Dosage: 175MG/M2  DAY 1 IV Q21D
     Route: 042
     Dates: start: 20060731

REACTIONS (2)
  - POST PROCEDURAL FISTULA [None]
  - SEPSIS [None]
